FAERS Safety Report 7441546-1 (Version None)
Quarter: 2011Q2

REPORT INFORMATION
  Report Type: 
  Country: None (occurrence: None)
  Receive Date: 20110428
  Receipt Date: 20110413
  Transmission Date: 20111010
  Serious: No
  Sender: FDA-Public Use
  Company Number: US-JNJFOC-20110406698

PATIENT
  Sex: Female

DRUGS (12)
  1. DURAGESIC [Suspect]
     Route: 062
  2. DURAGESIC [Suspect]
     Indication: PAIN
     Route: 062
  3. DURAGESIC [Suspect]
     Route: 062
  4. AMITRIPTYLINE [Concomitant]
     Route: 048
  5. PROGESTERONE [Concomitant]
     Indication: HORMONE REPLACEMENT THERAPY
     Route: 048
  6. FENTANYL-100 [Suspect]
     Indication: PAIN
     Route: 062
  7. ZANAFLEX [Concomitant]
     Route: 048
  8. CYMBALTA [Concomitant]
     Indication: ANTIDEPRESSANT THERAPY
     Route: 048
  9. ASPIRIN [Concomitant]
     Route: 048
  10. PERCOCET [Concomitant]
     Indication: PAIN
     Route: 048
  11. ESTROGENIC SUBSTANCE [Concomitant]
     Indication: HORMONE REPLACEMENT THERAPY
     Route: 048
  12. NEURONTIN [Concomitant]
     Indication: NEUROPATHY PERIPHERAL
     Route: 048

REACTIONS (4)
  - PRODUCT QUALITY ISSUE [None]
  - WRONG TECHNIQUE IN DRUG USAGE PROCESS [None]
  - DRUG INEFFECTIVE [None]
  - HYPERHIDROSIS [None]
